FAERS Safety Report 7406279-6 (Version None)
Quarter: 2011Q2

REPORT INFORMATION
  Report Type: 
  Country: None (occurrence: None)
  Receive Date: 20110411
  Receipt Date: 20110404
  Transmission Date: 20111010
  Serious: Yes (Other)
  Sender: FDA-Public Use
  Company Number: US-US-EMD SERONO, INC.-7049852

PATIENT
  Sex: Female

DRUGS (5)
  1. CITALOPRAM [Concomitant]
     Indication: DEPRESSION
     Dates: start: 20090401
  2. AMPYRA [Concomitant]
     Indication: GAIT DISTURBANCE
  3. UNSPECIFIED DIABETES MEDICATION [Concomitant]
     Indication: DIABETES MELLITUS
  4. IBUPROFEN [Concomitant]
  5. REBIF [Suspect]
     Indication: MULTIPLE SCLEROSIS
     Route: 058
     Dates: start: 20081206

REACTIONS (3)
  - HYPERSENSITIVITY [None]
  - BLINDNESS UNILATERAL [None]
  - BORDERLINE GLAUCOMA [None]
